FAERS Safety Report 21944397 (Version 1)
Quarter: 2023Q1

REPORT INFORMATION
  Report Type: Other
  Country: None (occurrence: GB)
  Receive Date: 20230202
  Receipt Date: 20230202
  Transmission Date: 20230418
  Serious: Yes (Life-Threatening, Hospitalization, Other)
  Sender: FDA-Public Use
  Company Number: GB-Spectra Medical Devices, LLC-2137397

PATIENT
  Age: 34 Year
  Sex: Male

DRUGS (1)
  1. LIDOCAINE HYDROCHLORIDE ANHYDROUS [Suspect]
     Active Substance: LIDOCAINE HYDROCHLORIDE ANHYDROUS
     Indication: Dental operation
     Route: 065

REACTIONS (4)
  - Respiratory tract oedema [Unknown]
  - Obstructive airways disorder [Unknown]
  - Drug hypersensitivity [Unknown]
  - Unresponsive to stimuli [Unknown]
